FAERS Safety Report 6164133-4 (Version None)
Quarter: 2009Q2

REPORT INFORMATION
  Report Type: 
  Country: None (occurrence: None)
  Receive Date: 20090422
  Receipt Date: 20090415
  Transmission Date: 20091009
  Serious: Yes (Hospitalization)
  Sender: FDA-Public Use
  Company Number: PHHY2009DE14269

PATIENT
  Age: 23 Year
  Sex: Male
  Weight: 93 kg

DRUGS (5)
  1. CYCLOSPORINE [Suspect]
     Indication: GLOMERULONEPHRITIS MEMBRANOUS
     Dosage: UNK
     Route: 048
     Dates: start: 20080901, end: 20090223
  2. FUROSEMIDE [Concomitant]
     Indication: NEPHROTIC SYNDROME
     Dosage: 20 MG, QD
     Route: 048
     Dates: start: 20080901
  3. PREDNISOLONE [Concomitant]
     Indication: GLOMERULONEPHRITIS MEMBRANOUS
     Dosage: 5 MG, QD
     Route: 048
     Dates: start: 20080901
  4. RAMIPRIL [Concomitant]
     Indication: NEPHROTIC SYNDROME
     Dosage: 5 MG, BID
     Route: 048
     Dates: start: 20080901
  5. SIMVAHEXAL [Concomitant]
     Indication: NEPHROTIC SYNDROME
     Dosage: 20 MG, QD
     Route: 048
     Dates: start: 20080901

REACTIONS (7)
  - ABDOMINAL PAIN [None]
  - CHEST DISCOMFORT [None]
  - DYSPNOEA [None]
  - IMMUNOSUPPRESSANT DRUG LEVEL INCREASED [None]
  - LIVER DISORDER [None]
  - PANCREATITIS [None]
  - SINUS TACHYCARDIA [None]
